FAERS Safety Report 4603186-9 (Version None)
Quarter: 2005Q1

REPORT INFORMATION
  Report Type: 
  Country: None (occurrence: None)
  Receive Date: 20050307
  Receipt Date: 20050301
  Transmission Date: 20050727
  Serious: Yes (Other)
  Sender: FDA-Public Use
  Company Number: 2005-03-0080

PATIENT
  Age: 68 Year
  Sex: Male

DRUGS (9)
  1. PEG-INTRON [Suspect]
     Indication: HEPATITIS C
     Dosage: 100-60MC* QW SUBCUTANEOUS
     Route: 058
     Dates: start: 20050115, end: 20050211
  2. PEG-INTRON [Suspect]
     Indication: HEPATITIS C
     Dosage: 100-60MC* QW SUBCUTANEOUS
     Route: 058
     Dates: start: 20050115, end: 20050219
  3. PEG-INTRON [Suspect]
     Indication: HEPATITIS C
     Dosage: 100-60MC* QW SUBCUTANEOUS
     Route: 058
     Dates: start: 20050212, end: 20050219
  4. REBETOL [Suspect]
     Indication: HEPATITIS C
     Dosage: 800-600 MG* ORAL
     Route: 048
     Dates: start: 20050115, end: 20050211
  5. REBETOL [Suspect]
     Indication: HEPATITIS C
     Dosage: 800-600 MG* ORAL
     Route: 048
     Dates: start: 20050115, end: 20050219
  6. REBETOL [Suspect]
     Indication: HEPATITIS C
     Dosage: 800-600 MG* ORAL
     Route: 048
     Dates: start: 20050212, end: 20050219
  7. BLOPRESS (CANDESARTAN CILEXETIL) [Concomitant]
  8. ISOSORBIDE MONONITRATE [Concomitant]
  9. DOGMATYL [Concomitant]

REACTIONS (3)
  - CEREBRAL HAEMORRHAGE [None]
  - DEPRESSION [None]
  - HYPOAESTHESIA [None]
